FAERS Safety Report 7137037-8 (Version None)
Quarter: 2010Q4

REPORT INFORMATION
  Report Type: 
  Country: None (occurrence: None)
  Receive Date: 20101206
  Receipt Date: 20071030
  Transmission Date: 20110411
  Serious: Yes (Death)
  Sender: FDA-Public Use
  Company Number: US-ACTELION-A-US2005-15309

PATIENT

DRUGS (9)
  1. ILOPROST INHALATION SOLUTION 5UG US [Suspect]
     Indication: PULMONARY HYPERTENSION
     Dosage: 5 UG, 6-9 X DAY
     Route: 055
     Dates: start: 20050601
  2. TRACLEER [Concomitant]
     Indication: PULMONARY HYPERTENSION
  3. NIFEDIPINE [Concomitant]
  4. GLIPIZIDE [Concomitant]
  5. OXYCONTIN [Concomitant]
  6. LASIX [Concomitant]
  7. WARFARIN SODIUM [Concomitant]
  8. PREDNISONE [Concomitant]
  9. VIAGRA [Concomitant]

REACTIONS (5)
  - BLOOD PRESSURE DECREASED [None]
  - DEATH [None]
  - DYSPNOEA [None]
  - PRURITUS [None]
  - SYNCOPE [None]
